FAERS Safety Report 10275431 (Version 1)
Quarter: 2014Q3

REPORT INFORMATION
  Report Type: Spontaneous
  Country: US (occurrence: US)
  Receive Date: 20140703
  Receipt Date: 20140703
  Transmission Date: 20150326
  Serious: No
  Sender: FDA-Public Use
  Company Number: US-009507513-1406USA011076

PATIENT
  Age: 3 Year
  Sex: Male

DRUGS (2)
  1. SINGULAIR [Suspect]
     Active Substance: MONTELUKAST SODIUM
     Indication: COUGH
  2. SINGULAIR [Suspect]
     Active Substance: MONTELUKAST SODIUM
     Indication: DYSPNOEA
     Dosage: 1 TABLET (4 MG), QD
     Route: 048
     Dates: start: 20140607, end: 20140612

REACTIONS (2)
  - Excessive eye blinking [Unknown]
  - Tic [Unknown]

NARRATIVE: CASE EVENT DATE: 20140611
